FAERS Safety Report 7672967-X (Version None)
Quarter: 2011Q3

REPORT INFORMATION
  Report Type: 
  Country: None (occurrence: None)
  Receive Date: 20110809
  Receipt Date: 20110728
  Transmission Date: 20111222
  Serious: Yes (Hospitalization)
  Sender: FDA-Public Use
  Company Number: ES-ASTRAZENECA-2011SE45319

PATIENT
  Age: 83 Year
  Sex: Female

DRUGS (5)
  1. ENANTYUM [Interacting]
     Indication: PAIN
     Dosage: UNKNOWN DOSE DAILY
     Route: 048
     Dates: start: 20090928, end: 20091007
  2. ATACAND [Suspect]
     Indication: HYPERTENSION
     Dosage: UNKNOWN DOSE DAILY
     Route: 048
     Dates: start: 20060101, end: 20091104
  3. SIMVASTATIN [Concomitant]
     Indication: HYPERLIPIDAEMIA
     Dosage: UNKNOWN DOSE DAILY
     Route: 048
     Dates: start: 20060201
  4. ASPIRIN [Interacting]
     Indication: PROPHYLAXIS
     Dosage: UNKNOWN DOSE DAILY
     Route: 048
     Dates: start: 20080801
  5. ALLOPURINOL [Concomitant]
     Dosage: UNKNOWN DOSE DAILY
     Route: 048
     Dates: start: 20060401

REACTIONS (2)
  - DRUG INTERACTION [None]
  - RENAL FAILURE ACUTE [None]
